FAERS Safety Report 7812976-0 (Version None)
Quarter: 2011Q4

REPORT INFORMATION
  Report Type: 
  Country: None (occurrence: None)
  Receive Date: 20111013
  Receipt Date: 20110928
  Transmission Date: 20120403
  Serious: Yes (Other)
  Sender: FDA-Public Use
  Company Number: US-TEVA-300769USA

PATIENT
  Sex: Female
  Weight: 36.32 kg

DRUGS (24)
  1. PROAIR HFA [Suspect]
     Indication: CHRONIC OBSTRUCTIVE PULMONARY DISEASE
  2. SERETIDE                           /01420901/ [Concomitant]
     Indication: PRODUCT USED FOR UNKNOWN INDICATION
  3. PROAIR HFA [Suspect]
     Indication: EMPHYSEMA
  4. SERETIDE                           /01420901/ [Concomitant]
     Indication: EMPHYSEMA
  5. IPRATROPIUM BROMIDE [Concomitant]
     Indication: ASTHMA
  6. TERBUTALINE SULFATE [Concomitant]
     Indication: CHRONIC OBSTRUCTIVE PULMONARY DISEASE
  7. RAMIPRIL [Concomitant]
     Indication: CARDIAC DISORDER
  8. SERETIDE                           /01420901/ [Concomitant]
     Indication: ASTHMA
  9. SERETIDE                           /01420901/ [Concomitant]
     Indication: CHRONIC OBSTRUCTIVE PULMONARY DISEASE
  10. IPRATROPIUM BROMIDE [Concomitant]
     Indication: CHRONIC OBSTRUCTIVE PULMONARY DISEASE
  11. RIFAMPIN [Concomitant]
  12. TERBUTALINE SULFATE [Concomitant]
     Indication: ASTHMA
  13. CLARITHROMYCIN [Concomitant]
  14. AXOTAL                             /00727001/ [Concomitant]
     Indication: PAIN
  15. PROAIR HFA [Suspect]
     Indication: PRODUCT USED FOR UNKNOWN INDICATION
  16. TERBUTALINE SULFATE [Concomitant]
     Indication: EMPHYSEMA
  17. ETHAMBUTOL HYDROCHLORIDE [Concomitant]
  18. METOPROLOL TARTRATE [Concomitant]
     Indication: CARDIAC DISORDER
  19. CLOPIDOGREL [Concomitant]
     Indication: CARDIAC DISORDER
  20. TERBUTALINE SULFATE [Concomitant]
     Indication: PRODUCT USED FOR UNKNOWN INDICATION
  21. CALCIUM CITRATE [Concomitant]
  22. PROAIR HFA [Suspect]
     Indication: ASTHMA
     Route: 055
  23. IPRATROPIUM BROMIDE [Concomitant]
     Indication: EMPHYSEMA
  24. IPRATROPIUM BROMIDE [Concomitant]
     Indication: PRODUCT USED FOR UNKNOWN INDICATION

REACTIONS (3)
  - HYPERTROPHIC CARDIOMYOPATHY [None]
  - MYOCARDIAL INFARCTION [None]
  - DRUG INEFFECTIVE [None]
